FAERS Safety Report 17854867 (Version 1)
Quarter: 2020Q2

REPORT INFORMATION
  Report Type: Spontaneous
  Country: US (occurrence: US)
  Receive Date: 20200602
  Receipt Date: 20200602
  Transmission Date: 20200714
  Serious: Yes (Hospitalization)
  Sender: FDA-Public Use
  Company Number: None

PATIENT
  Age: 79 Year
  Sex: Male
  Weight: 79.8 kg

DRUGS (1)
  1. OXALIPLATIN. [Suspect]
     Active Substance: OXALIPLATIN
     Indication: COLON CANCER
     Dates: start: 20200528, end: 20200528

REACTIONS (5)
  - Dysarthria [None]
  - Hypoaesthesia [None]
  - Pain in extremity [None]
  - Muscle spasms [None]
  - Musculoskeletal stiffness [None]

NARRATIVE: CASE EVENT DATE: 20200528
